FAERS Safety Report 9697461 (Version 1)
Quarter: 2013Q4

REPORT INFORMATION
  Report Type: Spontaneous
  Country: US (occurrence: None)
  Receive Date: 20131119
  Receipt Date: 20131119
  Transmission Date: 20140711
  Serious: Yes (Disabling)
  Sender: FDA-Public Use
  Company Number: None

PATIENT
  Age: 59 Year
  Sex: 0

DRUGS (1)
  1. OMEPRAZOLE [Suspect]
     Indication: OESOPHAGEAL STENOSIS
     Route: 048
     Dates: start: 20130617, end: 20131114

REACTIONS (8)
  - Oesophageal stenosis [None]
  - Hiatus hernia [None]
  - Abdominal pain [None]
  - Diarrhoea [None]
  - Decreased appetite [None]
  - Gastrooesophageal reflux disease [None]
  - Weight decreased [None]
  - Pain [None]
